FAERS Safety Report 6634548-6 (Version None)
Quarter: 2010Q1

REPORT INFORMATION
  Report Type: 
  Country: None (occurrence: None)
  Receive Date: 20100315
  Receipt Date: 20100311
  Transmission Date: 20100710
  Serious: Yes (Death)
  Sender: FDA-Public Use
  Company Number: AU-B.I. PHARMACEUTICALS,INC./RIDGEFIELD-2010-AU-00178AU

PATIENT
  Sex: Male

DRUGS (2)
  1. VIRAMUNE [Suspect]
     Indication: HIV INFECTION
     Dosage: 400 MG
     Route: 048
     Dates: start: 20080211, end: 20100213
  2. TRUVADA [Concomitant]
     Dosage: ONE TABLET DAILY
     Route: 048
     Dates: start: 20080211

REACTIONS (1)
  - COMPLETED SUICIDE [None]
